FAERS Safety Report 18632697 (Version 6)
Quarter: 2021Q2

REPORT INFORMATION
  Report Type: Report from Study
  Country: None (occurrence: US)
  Receive Date: 20201218
  Receipt Date: 20210408
  Transmission Date: 20210717
  Serious: Yes (Other)
  Sender: FDA-Public Use
  Company Number: US-ABBVIE-20K-163-3693398-00

PATIENT
  Age: 63 Year
  Sex: Female

DRUGS (7)
  1. HUMIRA [Suspect]
     Active Substance: ADALIMUMAB
     Indication: RHEUMATOID ARTHRITIS
     Dosage: CITRATE FREE
     Route: 058
     Dates: start: 20200515, end: 202012
  2. HUMIRA [Suspect]
     Active Substance: ADALIMUMAB
     Dosage: CITRATE FREE
     Route: 058
     Dates: start: 20210115, end: 20210205
  3. COVID?19 VACCINE NOS. [Concomitant]
     Active Substance: COVID-19 VACCINE NOS
     Indication: COVID-19 IMMUNISATION
     Route: 030
     Dates: start: 2021, end: 2021
  4. HUMIRA [Suspect]
     Active Substance: ADALIMUMAB
     Route: 058
     Dates: start: 20210305
  5. VITAMIN D3 [Concomitant]
     Active Substance: CHOLECALCIFEROL
     Indication: PRODUCT USED FOR UNKNOWN INDICATION
  6. VITAMIN B12 [Concomitant]
     Active Substance: CYANOCOBALAMIN
     Indication: PRODUCT USED FOR UNKNOWN INDICATION
  7. HUMIRA [Suspect]
     Active Substance: ADALIMUMAB
     Route: 058
     Dates: start: 202010

REACTIONS (47)
  - Neck pain [Not Recovered/Not Resolved]
  - Erythema [Unknown]
  - Thrombosis [Unknown]
  - Inflammation [Unknown]
  - Dizziness [Unknown]
  - Scoliosis [Not Recovered/Not Resolved]
  - Blood pressure fluctuation [Unknown]
  - Joint swelling [Recovering/Resolving]
  - Joint stiffness [Recovering/Resolving]
  - Regurgitation [Unknown]
  - Arthritis [Unknown]
  - Pain [Not Recovered/Not Resolved]
  - Nausea [Unknown]
  - Cellulitis [Unknown]
  - Back pain [Not Recovered/Not Resolved]
  - Oropharyngeal pain [Recovered/Resolved]
  - Rib fracture [Unknown]
  - Hyperhidrosis [Recovering/Resolving]
  - Fall [Unknown]
  - Loss of consciousness [Unknown]
  - Hiatus hernia [Unknown]
  - Weight decreased [Unknown]
  - Peripheral coldness [Unknown]
  - Head injury [Unknown]
  - Headache [Unknown]
  - Abdominal hernia [Unknown]
  - Musculoskeletal stiffness [Recovering/Resolving]
  - Depression [Recovering/Resolving]
  - Nail disorder [Unknown]
  - Peripheral swelling [Not Recovered/Not Resolved]
  - Pain in extremity [Recovered/Resolved]
  - Arthralgia [Recovering/Resolving]
  - Loose tooth [Unknown]
  - Grip strength decreased [Recovering/Resolving]
  - Laryngitis [Unknown]
  - Peripheral swelling [Recovering/Resolving]
  - Sialoadenitis [Unknown]
  - Pain in extremity [Unknown]
  - Ligament rupture [Unknown]
  - Hypophagia [Unknown]
  - Mobility decreased [Unknown]
  - Anxiety [Recovering/Resolving]
  - Hypoaesthesia [Unknown]
  - Hypertension [Unknown]
  - Ear pain [Recovered/Resolved]
  - Headache [Recovered/Resolved]
  - Therapeutic response shortened [Unknown]

NARRATIVE: CASE EVENT DATE: 2020
